FAERS Safety Report 8166339-1 (Version None)
Quarter: 2012Q1

REPORT INFORMATION
  Report Type: 
  Country: None (occurrence: None)
  Receive Date: 20120227
  Receipt Date: 20110715
  Transmission Date: 20120608
  Serious: No
  Sender: FDA-Public Use
  Company Number: US-MYLANLABS-2011S1012505

PATIENT
  Age: 18 Year
  Sex: Male
  Weight: 108.86 kg

DRUGS (3)
  1. ADDERALL 5 [Concomitant]
  2. AMNESTEEM [Suspect]
     Indication: ACNE
     Route: 048
     Dates: start: 20110216, end: 20110301
  3. AMNESTEEM [Suspect]
     Route: 048
     Dates: start: 20110216, end: 20110615

REACTIONS (5)
  - VISION BLURRED [None]
  - ARTHRALGIA [None]
  - HEADACHE [None]
  - PHOTOPHOBIA [None]
  - FATIGUE [None]
